FAERS Safety Report 10021283 (Version 5)
Quarter: 2015Q1

REPORT INFORMATION
  Report Type: Report from Study
  Country: CA (occurrence: CA)
  Receive Date: 20140319
  Receipt Date: 20150203
  Transmission Date: 20150720
  Serious: No
  Sender: FDA-Public Use
  Company Number: PHHY2014CA031740

PATIENT
  Sex: Male

DRUGS (1)
  1. TASIGNA [Suspect]
     Active Substance: NILOTINIB
     Indication: CHRONIC MYELOID LEUKAEMIA
     Dosage: 300 MG, BID
     Route: 048
     Dates: start: 20140210

REACTIONS (5)
  - Skin sensitisation [Recovered/Resolved]
  - Tumour marker increased [Unknown]
  - Dry skin [Unknown]
  - Pruritus [Recovered/Resolved]
  - Headache [Recovered/Resolved]
